FAERS Safety Report 4661086-2 (Version None)
Quarter: 2005Q2

REPORT INFORMATION
  Report Type: 
  Country: None (occurrence: None)
  Receive Date: 20050511
  Receipt Date: 20050428
  Transmission Date: 20051028
  Serious: Yes (Disabling)
  Sender: FDA-Public Use
  Company Number: FRWYE629828APR05

PATIENT
  Age: 31 Year
  Sex: Male

DRUGS (1)
  1. EFFEXOR [Suspect]
     Indication: PANIC ATTACK
     Dosage: 150 MG DAILY ORAL; SEE IMAGE
     Route: 048
     Dates: start: 20030101, end: 20050101

REACTIONS (7)
  - DRUG WITHDRAWAL SYNDROME [None]
  - FEELING OF DESPAIR [None]
  - FEELINGS OF WORTHLESSNESS [None]
  - FLASHBACK [None]
  - IMPAIRED WORK ABILITY [None]
  - NIGHTMARE [None]
  - WEIGHT INCREASED [None]
